FAERS Safety Report 10947770 (Version 1)
Quarter: 2015Q1

REPORT INFORMATION
  Report Type: Spontaneous
  Country: US (occurrence: US)
  Receive Date: 20150324
  Receipt Date: 20150324
  Transmission Date: 20150721
  Serious: No
  Sender: FDA-Public Use
  Company Number: US-009507513-1503USA005694

PATIENT
  Sex: Male

DRUGS (1)
  1. DULERA [Suspect]
     Active Substance: FORMOTEROL FUMARATE DIHYDRATE\MOMETASONE FUROATE
     Dosage: 2 PUFFS, TWICE DAILY, STRENGTH 100 MCG/5MCG, 1 STANDARD DOSE OF 13
     Route: 055
     Dates: start: 201409

REACTIONS (2)
  - Product quality issue [Unknown]
  - Incorrect dose administered [Unknown]
